FAERS Safety Report 15861315 (Version 1)
Quarter: 2019Q1

REPORT INFORMATION
  Report Type: Report from Study
  Country: IT (occurrence: IT)
  Receive Date: 20190124
  Receipt Date: 20190124
  Transmission Date: 20190417
  Serious: Yes (Other)
  Sender: FDA-Public Use
  Company Number: IT-TEVA-2019-IT-100078

PATIENT
  Age: 35 Year
  Sex: Male

DRUGS (4)
  1. CYCLOPHOSPHAMIDE. [Interacting]
     Active Substance: CYCLOPHOSPHAMIDE
     Indication: NEUROENDOCRINE CARCINOMA
     Dosage: ON DAY 1
     Route: 042
  2. INTERLEUKIN-2 [Interacting]
     Active Substance: ALDESLEUKIN
     Indication: NEUROENDOCRINE CARCINOMA
     Dosage: 18 MUI/M 2 ON DAYS 4-6 AND DAYS 18-20
     Route: 041
  3. FLUOROURACIL. [Suspect]
     Active Substance: FLUOROURACIL
     Indication: NEUROENDOCRINE CARCINOMA
     Dosage: ON DAY 1
     Route: 040
  4. INTERLEUKIN-2 [Interacting]
     Active Substance: ALDESLEUKIN
     Indication: NEUROENDOCRINE CARCINOMA
     Dosage: 18 MUI/M 2 ON DAYS 4-6 AND DAYS 18-20; FOLLOWED BY 18 MUI/M 2 ON DAYS 4-6 AND DAYS 18-20
     Route: 041

REACTIONS (11)
  - Off label use [Unknown]
  - Product use issue [Unknown]
  - Capillary leak syndrome [Unknown]
  - Hypothyroidism [Not Recovered/Not Resolved]
  - Drug interaction [Recovered/Resolved]
  - Hypotension [Recovered/Resolved]
  - Blood creatinine abnormal [Recovered/Resolved]
  - Pruritus [Recovered/Resolved]
  - Pyrexia [Unknown]
  - Thrombocytopenia [Recovered/Resolved]
  - Anaemia [Recovered/Resolved]
